FAERS Safety Report 10204374 (Version 1)
Quarter: 2014Q2

REPORT INFORMATION
  Report Type: Spontaneous
  Country: US (occurrence: US)
  Receive Date: 20140529
  Receipt Date: 20140529
  Transmission Date: 20141212
  Serious: No
  Sender: FDA-Public Use
  Company Number: US-MYLANLABS-2014S1006679

PATIENT
  Age: 60 Year
  Sex: Female
  Weight: 85.73 kg

DRUGS (4)
  1. AMITRIPTYLINE HYDROCHLORIDE TABLETS, USP [Suspect]
     Indication: NEUROPATHY PERIPHERAL
     Route: 048
     Dates: start: 201310
  2. AMITRIPTYLINE HYDROCHLORIDE TABLETS, USP [Suspect]
     Indication: OFF LABEL USE
     Route: 048
     Dates: start: 201310
  3. METFORMIN [Concomitant]
     Dates: start: 2009
  4. ATENOLOL [Concomitant]
     Dates: start: 2009

REACTIONS (2)
  - Breast enlargement [Not Recovered/Not Resolved]
  - Hair colour changes [Not Recovered/Not Resolved]
